FAERS Safety Report 21343631 (Version 1)
Quarter: 2022Q3

REPORT INFORMATION
  Report Type: Spontaneous
  Country: ES (occurrence: ES)
  Receive Date: 20220916
  Receipt Date: 20220916
  Transmission Date: 20221026
  Serious: Yes (Other)
  Sender: FDA-Public Use
  Company Number: ES-SAMSUNG BIOEPIS-SB-2022-23280

PATIENT
  Age: 38 Year
  Sex: Male

DRUGS (4)
  1. ADALIMUMAB [Suspect]
     Active Substance: ADALIMUMAB
     Indication: Ankylosing spondylitis
     Route: 065
  2. ADALIMUMAB [Suspect]
     Active Substance: ADALIMUMAB
     Indication: Iridocyclitis
  3. METHOTREXATE [Concomitant]
     Active Substance: METHOTREXATE
     Indication: Ankylosing spondylitis
     Route: 065
  4. METHOTREXATE [Concomitant]
     Active Substance: METHOTREXATE
     Indication: Iridocyclitis

REACTIONS (4)
  - Uveitis [Recovered/Resolved]
  - Tuberculosis of eye [Recovered/Resolved]
  - Tuberculosis [Recovered/Resolved]
  - Chorioretinal scar [Unknown]
